FAERS Safety Report 4923387-X (Version None)
Quarter: 2006Q1

REPORT INFORMATION
  Report Type: 
  Country: None (occurrence: None)
  Receive Date: 20060227
  Receipt Date: 20060217
  Transmission Date: 20060701
  Serious: Yes (Hospitalization)
  Sender: FDA-Public Use
  Company Number: MX-BOEHRINGER INGELHEIM PHARMACEUTICALS, INC.-2006-BP-01862MX

PATIENT
  Age: 34 Month
  Sex: Male
  Weight: 12.5 kg

DRUGS (3)
  1. COMBIVENT [Suspect]
     Indication: ASTHMA
     Route: 055
     Dates: start: 20060112, end: 20060116
  2. SINGULAIR [Concomitant]
     Indication: ASTHMA
     Route: 048
     Dates: start: 20051015
  3. RINELON [Concomitant]

REACTIONS (2)
  - DYSKINESIA [None]
  - HYPOTHERMIA [None]
